APPROVED DRUG PRODUCT: DEXTROSE 2.5% AND SODIUM CHLORIDE 0.33% IN PLASTIC CONTAINER
Active Ingredient: DEXTROSE; SODIUM CHLORIDE
Strength: 2.5GM/100ML;330MG/100ML
Dosage Form/Route: INJECTABLE;INJECTION
Application: N019631 | Product #003
Applicant: B BRAUN MEDICAL INC
Approved: Feb 24, 1988 | RLD: No | RS: No | Type: RX